FAERS Safety Report 5760247-9 (Version None)
Quarter: 2008Q2

REPORT INFORMATION
  Report Type: 
  Country: None (occurrence: None)
  Receive Date: 20080602
  Receipt Date: 20080520
  Transmission Date: 20081010
  Serious: Yes (Death)
  Sender: FDA-Public Use
  Company Number: FABR-1000252

PATIENT
  Sex: Male

DRUGS (6)
  1. FABRAZYME [Suspect]
     Indication: FABRY'S DISEASE
     Dosage: 70 MG, Q2W, INTRAVENOUS
     Route: 042
     Dates: start: 20061117
  2. HYDROXYZINE [Concomitant]
  3. ACETAMINOPHEN [Concomitant]
  4. ASPIRIN (SALICYLAMIDE) [Concomitant]
  5. REBAMIPIDE (REBAMIPIDE) [Concomitant]
  6. MECOBALAMIN (MECOBALAMIN) [Concomitant]

REACTIONS (1)
  - COMPLETED SUICIDE [None]
